FAERS Safety Report 25541020 (Version 1)
Quarter: 2025Q3

REPORT INFORMATION
  Report Type: Spontaneous
  Country: US (occurrence: US)
  Receive Date: 20250710
  Receipt Date: 20250710
  Transmission Date: 20251020
  Serious: Yes (Other)
  Sender: CROWN LABORATORIES, INC.
  Company Number: US-Crown Laboratories, Inc.-2180296

PATIENT
  Age: 30 Month
  Sex: Female
  Weight: 10.909 kg

DRUGS (1)
  1. BLUE LIZARD SENSITIVE SUNSCREEN [Suspect]
     Active Substance: TITANIUM DIOXIDE\ZINC OXIDE
     Dates: start: 202505, end: 202505

REACTIONS (5)
  - Hypersensitivity [Recovered/Resolved]
  - Scar [Unknown]
  - Scab [Recovered/Resolved]
  - Blister [Recovered/Resolved]
  - Pruritus [Recovered/Resolved]

NARRATIVE: CASE EVENT DATE: 20250501
